FAERS Safety Report 23265787 (Version 1)
Quarter: 2023Q4

REPORT INFORMATION
  Report Type: Report from Study
  Country: BR (occurrence: BR)
  Receive Date: 20231206
  Receipt Date: 20231206
  Transmission Date: 20240110
  Serious: Yes (Hospitalization, Disabling, Other)
  Sender: FDA-Public Use
  Company Number: BR-TAKEDA-2023TUS116640

PATIENT
  Sex: Female

DRUGS (3)
  1. PONATINIB [Suspect]
     Active Substance: PONATINIB
     Indication: Chronic myeloid leukaemia
     Dosage: 15 MILLIGRAM, TID
     Route: 065
     Dates: start: 202202
  2. PONATINIB [Suspect]
     Active Substance: PONATINIB
     Indication: Acute lymphocytic leukaemia
  3. POMPERC [Concomitant]
     Dosage: UNK
     Route: 048

REACTIONS (7)
  - Seizure [Unknown]
  - Central nervous system infection [Unknown]
  - Blindness [Unknown]
  - Headache [Unknown]
  - Central nervous system leukaemia [Unknown]
  - Philadelphia positive acute lymphocytic leukaemia [Unknown]
  - Dry skin [Recovering/Resolving]
